FAERS Safety Report 8848793 (Version 1)
Quarter: 2012Q4

REPORT INFORMATION
  Report Type: Spontaneous
  Country: US (occurrence: None)
  Receive Date: 20121017
  Receipt Date: 20121017
  Transmission Date: 20130627
  Serious: Yes (Hospitalization)
  Sender: FDA-Public Use
  Company Number: None

PATIENT
  Age: 56 Year
  Sex: Female
  Weight: 66.68 kg

DRUGS (2)
  1. SEROQUEL [Suspect]
  2. PROLIXIN [Suspect]

REACTIONS (4)
  - Euphoric mood [None]
  - Sexual abuse [None]
  - Delusion [None]
  - Paranoia [None]
